FAERS Safety Report 9919342 (Version 1)
Quarter: 2014Q1

REPORT INFORMATION
  Report Type: Spontaneous
  Country: FR (occurrence: FR)
  Receive Date: 20140224
  Receipt Date: 20140224
  Transmission Date: 20141002
  Serious: Yes (Hospitalization)
  Sender: FDA-Public Use
  Company Number: FR-SA-2014SA018491

PATIENT
  Age: 80 Year
  Sex: Male

DRUGS (12)
  1. LASILIX [Suspect]
     Indication: CARDIAC FAILURE
     Dosage: FORM: SCORED TABLET
     Route: 048
     Dates: start: 20130622, end: 20130627
  2. PERINDOPRIL [Suspect]
     Indication: HYPERTENSION
     Route: 048
     Dates: end: 20130627
  3. AUGMENTIN [Suspect]
     Indication: LUNG INFECTION
     Route: 048
     Dates: start: 20130626, end: 20130627
  4. ANAFRANIL [Concomitant]
     Indication: CONGESTIVE CARDIOMYOPATHY
  5. ALDACTONE [Concomitant]
     Indication: CARDIAC FAILURE
     Route: 048
     Dates: start: 20130625, end: 20130627
  6. SEROPLEX [Concomitant]
  7. INEXIUM [Concomitant]
  8. KARDEGIC [Concomitant]
  9. PLAVIX [Concomitant]
  10. TAHOR [Concomitant]
  11. LYSANXIA [Concomitant]
  12. BISOCE [Concomitant]

REACTIONS (2)
  - Respiratory tract oedema [Recovered/Resolved]
  - Dyspnoea [Recovered/Resolved]
